FAERS Safety Report 24278791 (Version 1)
Quarter: 2024Q3

REPORT INFORMATION
  Report Type: Spontaneous
  Country: US (occurrence: None)
  Receive Date: 20240831
  Receipt Date: 20240831
  Transmission Date: 20241017
  Serious: Yes (Other)
  Sender: Public
  Company Number: None

PATIENT
  Age: 68 Year
  Sex: Male
  Weight: 72 kg

DRUGS (8)
  1. TADALAFIL [Suspect]
     Active Substance: TADALAFIL
     Indication: Erectile dysfunction
     Dosage: OTHER QUANTITY : 1 TABLET(S);?FREQUENCY : DAILY;?
     Route: 048
     Dates: start: 20240827, end: 20240829
  2. SUMATRIPTAN [Concomitant]
     Active Substance: SUMATRIPTAN\SUMATRIPTAN SUCCINATE
  3. DEVICE [Concomitant]
     Active Substance: DEVICE
  4. ZINC [Concomitant]
     Active Substance: ZINC
  5. Essential Amino Acid powder [Concomitant]
  6. PROBIOTICS NOS [Concomitant]
     Active Substance: PROBIOTICS NOS
  7. UNSPECIFIED INGREDIENT [Concomitant]
     Active Substance: UNSPECIFIED INGREDIENT
  8. Electrolyte drops [Concomitant]

REACTIONS (6)
  - Eye pain [None]
  - Vision blurred [None]
  - Oropharyngeal pain [None]
  - Fatigue [None]
  - Headache [None]
  - Constipation [None]

NARRATIVE: CASE EVENT DATE: 20240830
